FAERS Safety Report 18314336 (Version 3)
Quarter: 2020Q4

REPORT INFORMATION
  Report Type: Report from Study
  Country: None (occurrence: US)
  Receive Date: 20200926
  Receipt Date: 20201207
  Transmission Date: 20210113
  Serious: Yes (Hospitalization)
  Sender: FDA-Public Use
  Company Number: US-ABBVIE-20K-163-3579954-00

PATIENT
  Age: 65 Year
  Sex: Female
  Weight: 77.63 kg

DRUGS (4)
  1. HUMIRA [Suspect]
     Active Substance: ADALIMUMAB
     Route: 058
     Dates: start: 2020, end: 20201019
  2. VALSARTAN. [Concomitant]
     Active Substance: VALSARTAN
     Indication: HYPERTENSION
  3. HUMIRA [Suspect]
     Active Substance: ADALIMUMAB
     Indication: COLITIS ULCERATIVE
     Route: 058
     Dates: start: 20200909, end: 202009
  4. HUMIRA [Suspect]
     Active Substance: ADALIMUMAB
     Indication: CROHN^S DISEASE
     Dosage: CITRATE FREE
     Route: 058

REACTIONS (7)
  - Therapeutic product effect decreased [Unknown]
  - Loss of consciousness [Recovered/Resolved]
  - Haemoglobin decreased [Recovering/Resolving]
  - Diarrhoea [Not Recovered/Not Resolved]
  - Faeces discoloured [Recovered/Resolved]
  - Gastrointestinal haemorrhage [Unknown]
  - Haematochezia [Unknown]

NARRATIVE: CASE EVENT DATE: 20200911
